FAERS Safety Report 9331126 (Version 1)
Quarter: 2013Q2

REPORT INFORMATION
  Report Type: Spontaneous
  Country: CH (occurrence: CH)
  Receive Date: 20130605
  Receipt Date: 20130605
  Transmission Date: 20140414
  Serious: Yes (Hospitalization, Other)
  Sender: FDA-Public Use
  Company Number: CH-FOUGERA-2013FO000124

PATIENT
  Age: 75 Year
  Sex: Male

DRUGS (3)
  1. SOLARAZE [Suspect]
     Indication: ACTINIC KERATOSIS
     Route: 061
     Dates: start: 20121211, end: 20130304
  2. CIPRALEX [Concomitant]
     Indication: DEPRESSION
     Route: 048
     Dates: start: 2012
  3. BLOPRESS [Concomitant]
     Route: 048

REACTIONS (2)
  - Subdural haematoma [Unknown]
  - Vertigo [Unknown]
